FAERS Safety Report 11738049 (Version 1)
Quarter: 2015Q4

REPORT INFORMATION
  Report Type: Spontaneous
  Country: US (occurrence: US)
  Receive Date: 20151110
  Receipt Date: 20151110
  Transmission Date: 20160304
  Serious: No
  Sender: FDA-Public Use
  Company Number: US-ELI_LILLY_AND_COMPANY-US201206001866

PATIENT
  Age: 69 Year
  Sex: Female

DRUGS (1)
  1. FORTEO [Suspect]
     Active Substance: TERIPARATIDE
     Indication: OSTEOPOROSIS
     Dosage: 20 UG, QD
     Route: 065
     Dates: start: 20120229, end: 20120511

REACTIONS (14)
  - Sinusitis [Unknown]
  - Mobility decreased [Recovering/Resolving]
  - Feeling abnormal [Unknown]
  - Tendonitis [Unknown]
  - Pain in extremity [Not Recovered/Not Resolved]
  - Viral infection [Unknown]
  - Rotator cuff syndrome [Unknown]
  - Herpes zoster [Recovering/Resolving]
  - Malaise [Unknown]
  - Tendon disorder [Unknown]
  - Ligament disorder [Unknown]
  - Fatigue [Unknown]
  - Periarthritis [Unknown]
  - Pain in extremity [Recovered/Resolved]

NARRATIVE: CASE EVENT DATE: 20120504
